FAERS Safety Report 8253956-3 (Version None)
Quarter: 2012Q2

REPORT INFORMATION
  Report Type: 
  Country: None (occurrence: None)
  Receive Date: 20120402
  Receipt Date: 20120319
  Transmission Date: 20120825
  Serious: No
  Sender: FDA-Public Use
  Company Number: US-AMGEN-USASP2012017575

PATIENT
  Sex: Male

DRUGS (2)
  1. ENBREL [Suspect]
     Indication: RHEUMATOID ARTHRITIS
     Dosage: 50 MG, QWK
     Dates: start: 20070101, end: 20070101
  2. ENBREL [Suspect]
     Indication: ANKYLOSING SPONDYLITIS

REACTIONS (5)
  - MIGRAINE [None]
  - PAIN [None]
  - BACK PAIN [None]
  - JOINT SWELLING [None]
  - MUSCULOSKELETAL STIFFNESS [None]
